FAERS Safety Report 12119299 (Version 1)
Quarter: 2016Q1

REPORT INFORMATION
  Report Type: Spontaneous
  Country: JP (occurrence: JP)
  Receive Date: 20160226
  Receipt Date: 20160226
  Transmission Date: 20160526
  Serious: Yes (Other)
  Sender: FDA-Public Use
  Company Number: JP-GLAXOSMITHKLINE-JP2016GSK023438

PATIENT
  Age: 3 Month
  Sex: Male

DRUGS (2)
  1. FLOLAN [Suspect]
     Active Substance: EPOPROSTENOL SODIUM
     Dosage: UNK
  2. NITRIC ACID [Suspect]
     Active Substance: NITRIC ACID
     Indication: PULMONARY HYPERTENSION
     Dosage: UNK

REACTIONS (2)
  - Cardiac failure high output [Recovered/Resolved]
  - Pulmonary congestion [Recovering/Resolving]
